FAERS Safety Report 6194276-0 (Version None)
Quarter: 2009Q2

REPORT INFORMATION
  Report Type: 
  Country: None (occurrence: None)
  Receive Date: 20090519
  Receipt Date: 20071211
  Transmission Date: 20091009
  Serious: Yes (Other)
  Sender: FDA-Public Use
  Company Number: US-ASTRAZENECA-2006UW11373

PATIENT
  Age: 54 Year
  Sex: Male
  Weight: 108 kg

DRUGS (44)
  1. SEROQUEL [Suspect]
     Dosage: 25-600 MG
     Route: 048
     Dates: start: 20001013
  2. SEROQUEL [Suspect]
     Dosage: 100 TO 200 MG
     Route: 048
     Dates: start: 20040101, end: 20060101
  3. LIPITOR [Concomitant]
     Dosage: 10-20MG
     Route: 065
  4. ALLEGRA [Concomitant]
     Route: 048
  5. AMOXICILLIN [Concomitant]
     Route: 048
  6. ANTIVERT [Concomitant]
     Route: 065
  7. ATENOLOL [Concomitant]
     Dosage: 25-50MG
     Route: 048
  8. MIRTAZAPINE [Concomitant]
     Route: 048
  9. GEMFIBROZIL [Concomitant]
     Route: 048
  10. GLUCOTROL [Concomitant]
     Route: 048
  11. PHENERGAN [Concomitant]
     Route: 065
  12. DOXEPIN HCL [Concomitant]
     Route: 048
  13. PROPRANOLOL HYDROCHLORIDE [Concomitant]
     Route: 048
  14. NEURONTIN [Concomitant]
     Route: 048
  15. ATIVAN [Concomitant]
     Route: 065
  16. OMNICEF [Concomitant]
     Route: 048
  17. DELATESTRYL [Concomitant]
     Dosage: STRENGTH- 200 MG/ML
     Route: 065
  18. BIAXIN XL [Concomitant]
     Route: 048
  19. ZYRTEC [Concomitant]
     Route: 048
  20. PIROXICAM [Concomitant]
     Route: 048
  21. OXYCODONE HYDROCHLORIDE [Concomitant]
     Route: 048
  22. METHYLPREDNISOLONE 4MG TAB [Concomitant]
     Route: 048
  23. KLONOPIN [Concomitant]
     Route: 048
  24. CIPROFLOXACIN [Concomitant]
     Dosage: 250-500MG
     Route: 048
  25. ZANTAC [Concomitant]
     Route: 065
  26. VISTARIL [Concomitant]
     Dosage: 25-50MG
     Route: 065
  27. PREVACID [Concomitant]
     Route: 065
  28. NITRO-BID [Concomitant]
     Route: 065
  29. ZETIA [Concomitant]
     Route: 065
  30. BENTYL [Concomitant]
     Dosage: 10-20MG
     Route: 065
  31. GLUCOPHAGE [Concomitant]
     Route: 065
  32. LEVEMIR [Concomitant]
     Dosage: 20 UNITS
     Route: 065
  33. AMBIEN [Concomitant]
     Dosage: 5-10MG
     Route: 048
  34. NORVASC [Concomitant]
     Route: 065
  35. ASPIRIN [Concomitant]
     Route: 065
  36. PRILOSEC [Concomitant]
     Route: 065
  37. NIZORAL [Concomitant]
     Route: 048
  38. PROTONIX [Concomitant]
     Route: 065
  39. SINGULAIR [Concomitant]
     Route: 065
  40. LORTAB [Concomitant]
     Route: 065
  41. WELLBUTRIN XL [Concomitant]
     Route: 065
  42. MONOPRIL [Concomitant]
     Route: 048
  43. LEVAQUIN [Concomitant]
     Route: 048
  44. DEXAMETHASONE 4MG TAB [Concomitant]
     Route: 065

REACTIONS (24)
  - CHEST PAIN [None]
  - COUGH [None]
  - DEPRESSION [None]
  - DIABETES MELLITUS [None]
  - DIARRHOEA [None]
  - DIZZINESS [None]
  - DYSURIA [None]
  - FATIGUE [None]
  - FUNGAL INFECTION [None]
  - GENERALISED ANXIETY DISORDER [None]
  - HEADACHE [None]
  - HYPERCHOLESTEROLAEMIA [None]
  - HYPERTRIGLYCERIDAEMIA [None]
  - INFLUENZA [None]
  - INSOMNIA [None]
  - NAUSEA [None]
  - NIGHT SWEATS [None]
  - PAIN [None]
  - PAIN IN EXTREMITY [None]
  - PRURITUS [None]
  - RASH [None]
  - SLEEP APNOEA SYNDROME [None]
  - VERTIGO [None]
  - VOMITING [None]
